FAERS Safety Report 4982868-3 (Version None)
Quarter: 2006Q2

REPORT INFORMATION
  Report Type: 
  Country: None (occurrence: None)
  Receive Date: 20060420
  Receipt Date: 20060320
  Transmission Date: 20061013
  Serious: Yes (Hospitalization)
  Sender: FDA-Public Use
  Company Number: CIO05020486

PATIENT
  Age: 48 Year
  Sex: Female
  Weight: 58 kg

DRUGS (5)
  1. METAMUCIL-2 [Suspect]
     Indication: BOWEL MOVEMENT IRREGULARITY
     Dosage: 1 TBSP, 1 ONLY FOR 1 DAY, ORAL
     Route: 048
     Dates: start: 20051220, end: 20051220
  2. PRILOSEC [Concomitant]
  3. TUMS (CALCIUM CARBONATE) [Concomitant]
  4. H2 BLOCKER (CIMETIDINE HYDROCHLORIDE) [Concomitant]
  5. PROTON PUMP INHIBITORS [Concomitant]

REACTIONS (20)
  - ABDOMINAL PAIN UPPER [None]
  - BILIARY DYSKINESIA [None]
  - CHILLS [None]
  - CHOLECYSTITIS CHRONIC [None]
  - COLONIC OBSTRUCTION [None]
  - DISCOMFORT [None]
  - DYSPHAGIA [None]
  - DYSPHASIA [None]
  - GALLBLADDER DISORDER [None]
  - GASTROENTERITIS [None]
  - GASTROOESOPHAGEAL REFLUX DISEASE [None]
  - HEART RATE INCREASED [None]
  - INTESTINAL DILATATION [None]
  - NAUSEA [None]
  - NEPHROLITHIASIS [None]
  - PAIN [None]
  - SENSATION OF FOREIGN BODY [None]
  - SHIFT TO THE LEFT [None]
  - SMALL INTESTINAL OBSTRUCTION [None]
  - VOMITING [None]
